FAERS Safety Report 8014298-4 (Version None)
Quarter: 2011Q4

REPORT INFORMATION
  Report Type: 
  Country: None (occurrence: None)
  Receive Date: 20111229
  Receipt Date: 20111221
  Transmission Date: 20120403
  Serious: Yes (Hospitalization)
  Sender: FDA-Public Use
  Company Number: US-GLAXOSMITHKLINE-B0772141A

PATIENT
  Age: 15 Year
  Sex: Male

DRUGS (2)
  1. BUPROPION HCL [Suspect]
     Indication: DEPRESSION
     Dosage: 150MG PER DAY
     Route: 065
  2. OLANZAPINE [Suspect]
     Dosage: 25MG PER DAY
     Route: 065

REACTIONS (8)
  - SOCIAL AVOIDANT BEHAVIOUR [None]
  - MUTISM [None]
  - SUSPICIOUSNESS [None]
  - DELUSION [None]
  - CATATONIA [None]
  - ADVERSE DRUG REACTION [None]
  - PSYCHOTIC DISORDER [None]
  - IMPAIRED SELF-CARE [None]
